FAERS Safety Report 13965004 (Version 1)
Quarter: 2017Q3

REPORT INFORMATION
  Report Type: Spontaneous
  Country: US (occurrence: US)
  Receive Date: 20170913
  Receipt Date: 20170913
  Transmission Date: 20171128
  Serious: No
  Sender: FDA-Public Use
  Company Number: US-BAYER-2017-174676

PATIENT
  Age: 65 Year
  Sex: Male

DRUGS (8)
  1. BENAZEPRIL HYDROCHLORIDE. [Concomitant]
     Active Substance: BENAZEPRIL HYDROCHLORIDE
  2. NORCO [Concomitant]
     Active Substance: ACETAMINOPHEN\HYDROCODONE BITARTRATE
  3. MS CONTIN [Concomitant]
     Active Substance: MORPHINE SULFATE
  4. COLACE [Concomitant]
     Active Substance: DOCUSATE SODIUM
  5. VITAMIN D2 [Concomitant]
     Active Substance: ERGOCALCIFEROL
  6. NEXAVAR [Suspect]
     Active Substance: SORAFENIB
     Indication: LIVER DISORDER
     Dosage: 400 MG, BID
     Route: 048
     Dates: start: 20161101, end: 2017
  7. OXYCODONE HYDROCHLORIDE. [Concomitant]
     Active Substance: OXYCODONE HYDROCHLORIDE
  8. FERROUS FUMARATE [Concomitant]
     Active Substance: FERROUS FUMARATE

REACTIONS (1)
  - Drug ineffective [None]
